FAERS Safety Report 25028887 (Version 1)
Quarter: 2025Q1

REPORT INFORMATION
  Report Type: Spontaneous
  Country: AU (occurrence: AU)
  Receive Date: 20250302
  Receipt Date: 20250302
  Transmission Date: 20250409
  Serious: Yes (Other)
  Sender: NOVO NORDISK
  Company Number: AU-NOVOPROD-1376713

PATIENT
  Sex: Female

DRUGS (1)
  1. WEGOVY [Suspect]
     Active Substance: SEMAGLUTIDE
     Indication: Product used for unknown indication
     Dates: start: 20241015, end: 20241212

REACTIONS (8)
  - Retinal exudates [Unknown]
  - Viral infection [Unknown]
  - Hypotension [Unknown]
  - Lethargy [Unknown]
  - Pyrexia [Unknown]
  - Visual impairment [Not Recovered/Not Resolved]
  - Heart rate increased [Unknown]
  - Inappropriate schedule of product administration [Unknown]
